FAERS Safety Report 5443553-7 (Version None)
Quarter: 2007Q3

REPORT INFORMATION
  Report Type: 
  Country: None (occurrence: None)
  Receive Date: 20070905
  Receipt Date: 20070829
  Transmission Date: 20080115
  Serious: Yes (Hospitalization)
  Sender: FDA-Public Use
  Company Number: US-ROCHE-513963

PATIENT
  Age: 68 Year
  Sex: Female
  Weight: 61.2 kg

DRUGS (12)
  1. BONIVA [Suspect]
     Indication: OSTEOPENIA
     Route: 042
     Dates: start: 20070424, end: 20070808
  2. ACIPHEX [Concomitant]
     Indication: GASTRITIS
  3. METOPROLOL SUCCINATE [Concomitant]
  4. PLAVIX [Concomitant]
  5. RANEXA [Concomitant]
  6. ISOSORBIDE DINITRATE [Concomitant]
  7. ASPIRIN [Concomitant]
  8. DICLO (DICLOFENAC) [Concomitant]
     Indication: INFLAMMATION
  9. NITROFURANTOIN [Concomitant]
  10. CRESTOR [Concomitant]
  11. UNSPECIFIED MEDICATION [Concomitant]
     Dosage: REPORTED AS CALCIUM WITH D
  12. PRED FORTE [Concomitant]
     Indication: CORNEAL TRANSPLANT

REACTIONS (3)
  - BLOOD PRESSURE INCREASED [None]
  - CHEST PAIN [None]
  - GASTRITIS [None]
